FAERS Safety Report 24156462 (Version 1)
Quarter: 2024Q3

REPORT INFORMATION
  Report Type: Spontaneous
  Country: DE (occurrence: DE)
  Receive Date: 20240731
  Receipt Date: 20240731
  Transmission Date: 20241017
  Serious: Yes (Other)
  Sender: TORRENT
  Company Number: None

PATIENT
  Age: 64 Year
  Sex: Female
  Weight: 150 kg

DRUGS (1)
  1. VENLAFAXINE HYDROCHLORIDE [Suspect]
     Active Substance: VENLAFAXINE HYDROCHLORIDE
     Indication: Depression
     Dosage: 2-0-0
     Route: 048
     Dates: start: 20200101, end: 20240620

REACTIONS (2)
  - Fatigue [Recovering/Resolving]
  - Narcolepsy [Recovering/Resolving]

NARRATIVE: CASE EVENT DATE: 20230101
